FAERS Safety Report 5994299-8 (Version None)
Quarter: 2008Q4

REPORT INFORMATION
  Report Type: 
  Country: None (occurrence: None)
  Receive Date: 20081212
  Receipt Date: 20080905
  Transmission Date: 20090506
  Serious: No
  Sender: FDA-Public Use
  Company Number: US-ABBOTT-08P-163-0474802-00

PATIENT
  Sex: Female
  Weight: 48.578 kg

DRUGS (7)
  1. HUMIRA [Suspect]
     Indication: PSORIASIS
     Route: 058
     Dates: start: 20080807
  2. HUMIRA [Suspect]
     Indication: PSORIATIC ARTHROPATHY
  3. ACITRETIN [Concomitant]
     Indication: PSORIASIS
     Route: 048
  4. PREDNISONE TAB [Concomitant]
     Indication: ADRENAL INSUFFICIENCY
     Route: 048
  5. AMLODIPINE [Concomitant]
     Indication: HYPERTENSION
     Route: 048
     Dates: start: 20050101
  6. INEGY [Concomitant]
     Indication: BLOOD CHOLESTEROL ABNORMAL
     Route: 048
  7. TERIPARATIDE [Concomitant]
     Indication: OSTEOPOROSIS
     Route: 050
     Dates: start: 20060101

REACTIONS (2)
  - ACCIDENTAL EXPOSURE [None]
  - INJECTION SITE HAEMORRHAGE [None]
